FAERS Safety Report 20451759 (Version 1)
Quarter: 2022Q1

REPORT INFORMATION
  Report Type: Spontaneous
  Country: US (occurrence: US)
  Receive Date: 20220209
  Receipt Date: 20220209
  Transmission Date: 20220423
  Serious: Yes (Other)
  Sender: FDA-Public Use
  Company Number: US-CELGENE-USA-20220201097

PATIENT
  Age: 46 Year
  Sex: Female
  Weight: 53.2 kg

DRUGS (1)
  1. ABECMA [Suspect]
     Active Substance: IDECABTAGENE VICLEUCEL
     Indication: Plasma cell myeloma
     Dosage: CAR + T CELLS
     Route: 041
     Dates: start: 20211022, end: 20211022

REACTIONS (3)
  - Cytokine release syndrome [Unknown]
  - Nausea [Unknown]
  - Aspartate aminotransferase increased [Unknown]

NARRATIVE: CASE EVENT DATE: 20211023
